FAERS Safety Report 10149847 (Version 2)
Quarter: 2014Q2

REPORT INFORMATION
  Report Type: Spontaneous
  Country: RU (occurrence: RU)
  Receive Date: 20140502
  Receipt Date: 20140506
  Transmission Date: 20141212
  Serious: Yes (Hospitalization)
  Sender: FDA-Public Use
  Company Number: PHHY2014RU050961

PATIENT
  Age: 59 Year
  Sex: Male

DRUGS (2)
  1. AMOXICLAV BEXAL [Suspect]
     Indication: PROPHYLAXIS
     Route: 048
  2. SILICA GEL [Suspect]

REACTIONS (2)
  - Dyspepsia [Recovering/Resolving]
  - Drug administration error [Recovering/Resolving]
